FAERS Safety Report 8127803-4 (Version None)
Quarter: 2012Q1

REPORT INFORMATION
  Report Type: 
  Country: None (occurrence: None)
  Receive Date: 20120210
  Receipt Date: 20120201
  Transmission Date: 20120608
  Serious: Yes (Other)
  Sender: FDA-Public Use
  Company Number: US-AMGEN-US373162

PATIENT
  Age: 9 Year
  Sex: Male
  Weight: 29 kg

DRUGS (7)
  1. NAPROSYN [Concomitant]
     Dosage: 250 MG, UNK (250 MG TWO PER DAY)
  2. LANTUS [Concomitant]
     Dosage: UNK (100 U/ML)
     Route: 058
  3. NOVOLOG [Concomitant]
     Dosage: UNK (100U/ML, 1 PER DAY)
     Route: 058
  4. ALAVERT [Concomitant]
     Dosage: 10 MG, UNK (10 MG ONE PER DAY )
     Route: 048
  5. ZONEGRAN [Concomitant]
     Dosage: 50 MG, UNK
     Route: 048
  6. ETANERCEPT [Suspect]
     Indication: JUVENILE ARTHRITIS
     Dosage: 25 MG, WEEKLY
     Route: 058
     Dates: start: 20090318, end: 20090429
  7. DEPAKOTE [Concomitant]
     Dosage: 750 MG, UNK (750 MG 24 H )
     Route: 048

REACTIONS (1)
  - CONFUSIONAL STATE [None]
